FAERS Safety Report 9907265 (Version 1)
Quarter: 2014Q1

REPORT INFORMATION
  Report Type: Spontaneous
  Country: US (occurrence: US)
  Receive Date: 20140218
  Receipt Date: 20140218
  Transmission Date: 20141002
  Serious: No
  Sender: FDA-Public Use
  Company Number: US-B.I. PHARMACEUTICALS,INC./RIDGEFIELD-2014-BI-06577BP

PATIENT
  Age: 51 Year
  Sex: Female

DRUGS (2)
  1. GILOTRIF [Suspect]
     Indication: NON-SMALL CELL LUNG CANCER
     Dosage: 30 MG
     Route: 048
     Dates: start: 20140123, end: 201402
  2. GILOTRIF [Suspect]
     Dosage: 20 MG
     Route: 048
     Dates: start: 201402

REACTIONS (1)
  - Diarrhoea [Unknown]
